FAERS Safety Report 22160902 (Version 1)
Quarter: 2023Q1

REPORT INFORMATION
  Report Type: Spontaneous
  Country: US (occurrence: None)
  Receive Date: 20230331
  Receipt Date: 20230331
  Transmission Date: 20230417
  Serious: Yes (Other)
  Sender: FDA-Public Use
  Company Number: None

PATIENT
  Age: 53 Year
  Sex: Male
  Weight: 94.5 kg

DRUGS (1)
  1. DEFINITY [Suspect]
     Active Substance: PERFLUTREN
     Indication: Cardiac stress test
     Dosage: 1.3 ML  1 INTRAVENOUS?
     Route: 042
     Dates: start: 20230328, end: 20230328

REACTIONS (2)
  - Back pain [None]
  - Contrast media reaction [None]

NARRATIVE: CASE EVENT DATE: 20230328
